FAERS Safety Report 18790476 (Version 1)
Quarter: 2021Q1

REPORT INFORMATION
  Report Type: Spontaneous
  Country: JP (occurrence: JP)
  Receive Date: 20210126
  Receipt Date: 20210126
  Transmission Date: 20210419
  Serious: Yes (Other)
  Sender: FDA-Public Use
  Company Number: JP-PFIZER INC-2021052069

PATIENT
  Age: 27 Year
  Sex: Male
  Weight: 56.5 kg

DRUGS (4)
  1. ANTEBATE [Concomitant]
     Active Substance: BETAMETHASONE DIPROPIONATE
     Dosage: UNK
  2. CLINDAMYCIN. [Concomitant]
     Active Substance: CLINDAMYCIN
     Dosage: UNK
  3. VIBRAMYCIN [Suspect]
     Active Substance: DOXYCYCLINE
     Dosage: 100 MG, ALTERNATE DAY
  4. VIBRAMYCIN [Suspect]
     Active Substance: DOXYCYCLINE
     Indication: FURUNCLE
     Dosage: 100 MG, DAILY (2 WEEKS)
     Route: 048
     Dates: start: 20200613

REACTIONS (3)
  - Cholestasis [Not Recovered/Not Resolved]
  - Drug-induced liver injury [Not Recovered/Not Resolved]
  - Vanishing bile duct syndrome [Not Recovered/Not Resolved]

NARRATIVE: CASE EVENT DATE: 20201021
